FAERS Safety Report 24385091 (Version 1)
Quarter: 2024Q4

REPORT INFORMATION
  Report Type: Spontaneous
  Country: US (occurrence: US)
  Receive Date: 20241001
  Receipt Date: 20241001
  Transmission Date: 20250115
  Serious: Yes (Hospitalization, Other)
  Sender: BRISTOL MYERS SQUIBB
  Company Number: US-BRISTOL-MYERS SQUIBB COMPANY-2024-151548

PATIENT
  Age: 82 Year
  Sex: Male

DRUGS (4)
  1. NIVOLUMAB [Suspect]
     Active Substance: NIVOLUMAB
     Indication: Gastric cancer stage IV
  2. IPILIMUMAB [Suspect]
     Active Substance: IPILIMUMAB
     Indication: Gastric cancer stage IV
  3. PEMETREXED [Concomitant]
     Active Substance: PEMETREXED
     Indication: Gastric cancer stage IV
  4. CARBOPLATIN [Concomitant]
     Active Substance: CARBOPLATIN
     Indication: Gastric cancer stage IV

REACTIONS (1)
  - Cardiomyopathy [Recovering/Resolving]
